FAERS Safety Report 7148510-0 (Version None)
Quarter: 2010Q4

REPORT INFORMATION
  Report Type: 
  Country: None (occurrence: None)
  Receive Date: 20101209
  Receipt Date: 20101118
  Transmission Date: 20110411
  Serious: Yes (Other)
  Sender: FDA-Public Use
  Company Number: US-PFIZER INC-US-WYE-H17539010

PATIENT
  Age: 93 Year
  Sex: Male
  Weight: 74.83 kg

DRUGS (6)
  1. ROBITUSSIN COUGH AND CHEST CONGESTION DM [Suspect]
     Indication: COUGH
     Dosage: 2 TSP 1 TIME PER DAY AS NEEDED
     Route: 048
     Dates: start: 20100913
  2. ROBITUSSIN COUGH AND CHEST CONGESTION DM [Suspect]
     Indication: NASOPHARYNGITIS
  3. ROBINUL [Suspect]
  4. COUMADIN [Concomitant]
     Indication: PRODUCT USED FOR UNKNOWN INDICATION
     Dosage: UNK
     Route: 048
  5. OXYGEN [Concomitant]
     Indication: PRODUCT USED FOR UNKNOWN INDICATION
     Dosage: UNKNOWN DOSE, ^CONSTANT^
     Route: 055
  6. LASIX [Concomitant]
     Indication: PRODUCT USED FOR UNKNOWN INDICATION
     Dosage: UNK
     Route: 065

REACTIONS (2)
  - DYSURIA [None]
  - URINARY RETENTION [None]
